FAERS Safety Report 5356122-4 (Version None)
Quarter: 2007Q2

REPORT INFORMATION
  Report Type: 
  Country: None (occurrence: None)
  Receive Date: 20070613
  Receipt Date: 20070606
  Transmission Date: 20071010
  Serious: Yes (Other)
  Sender: FDA-Public Use
  Company Number: US-ROXANE LABORATORIES, INC-2007-BP-07639RO

PATIENT
  Age: 74 Year
  Sex: Female

DRUGS (3)
  1. CITALOPRAM HYDROBROMIDE [Suspect]
     Indication: DEPRESSION
     Route: 048
  2. DULOXETINE [Suspect]
     Indication: DEPRESSION
     Route: 048
  3. TRAZODONE HCL [Suspect]
     Indication: INSOMNIA
     Route: 048

REACTIONS (2)
  - ORGASM ABNORMAL [None]
  - THERAPEUTIC PRODUCT INEFFECTIVE [None]
